FAERS Safety Report 4802749-5 (Version None)
Quarter: 2005Q4

REPORT INFORMATION
  Report Type: 
  Country: None (occurrence: None)
  Receive Date: 20051017
  Receipt Date: 20051017
  Transmission Date: 20060501
  Serious: Yes (Hospitalization)
  Sender: FDA-Public Use
  Company Number: None

PATIENT
  Age: 10 Month
  Sex: Male

DRUGS (5)
  1. RILUZOLE [Suspect]
     Indication: SPINAL MUSCULAR ATROPHY
     Dosage: 40 MG DAILY OTHER
     Dates: start: 20050831, end: 20050831
  2. ZANTAC [Concomitant]
  3. BETHANECHOL [Concomitant]
  4. PULMICORT [Concomitant]
  5. COLACE [Concomitant]

REACTIONS (4)
  - COUGH [None]
  - HEART RATE INCREASED [None]
  - RESPIRATORY DISTRESS [None]
  - RHINORRHOEA [None]
